FAERS Safety Report 4693972-1 (Version None)
Quarter: 2005Q2

REPORT INFORMATION
  Report Type: 
  Country: None (occurrence: None)
  Receive Date: 20050616
  Receipt Date: 20050614
  Transmission Date: 20051028
  Serious: Yes (Hospitalization)
  Sender: FDA-Public Use
  Company Number: VESR0220050002

PATIENT
  Age: 76 Year
  Sex: Female

DRUGS (11)
  1. VERAPAMIL HCL [Suspect]
     Indication: HYPERTENSION
     Dosage: 180 MG DAILY
  2. TELITHROMYCIN (TELITHROMYCIN) [Suspect]
     Indication: ACUTE SINUSITIS
     Dosage: 800 MG DAILY
  3. ESOMEPRAZOLE [Concomitant]
  4. TELMISARTAN [Concomitant]
  5. FUROSEMIDE [Concomitant]
  6. MONTELUKAST [Concomitant]
  7. COLESEVELEM [Concomitant]
  8. OXAPROZIN [Concomitant]
  9. FLUTICASONE 0.5% NASAL SPRAY [Concomitant]
  10. ALBUTEROL 90 UG/IPRATROPIUM 18UG [Concomitant]
  11. BUDESONIDE [Concomitant]

REACTIONS (10)
  - ASTHENIA [None]
  - BRADYCARDIA [None]
  - CONFUSIONAL STATE [None]
  - DRUG INTERACTION [None]
  - DRUG TOXICITY [None]
  - DYSPNOEA [None]
  - HYPOTENSION [None]
  - LETHARGY [None]
  - NODAL RHYTHM [None]
  - SINUSITIS [None]
